FAERS Safety Report 5135613-5 (Version None)
Quarter: 2006Q4

REPORT INFORMATION
  Report Type: 
  Country: None (occurrence: None)
  Receive Date: 20061020
  Receipt Date: 20060816
  Transmission Date: 20070319
  Serious: Yes (Death)
  Sender: FDA-Public Use
  Company Number: S06-USA-04303-01

PATIENT
  Age: 61 Year
  Sex: Male

DRUGS (8)
  1. LEXAPRO [Suspect]
     Indication: ANXIETY
     Dates: start: 20040308
  2. LEXAPRO [Suspect]
     Indication: INSOMNIA
     Dates: start: 20040308
  3. LEXAPRO [Suspect]
     Indication: ANXIETY
     Dates: start: 20040602, end: 20040609
  4. LEXAPRO [Suspect]
     Indication: INSOMNIA
     Dates: start: 20040602, end: 20040609
  5. LEXAPRO [Suspect]
     Indication: ANXIETY
     Dates: start: 20040610, end: 20040725
  6. LEXAPRO [Suspect]
     Indication: INSOMNIA
     Dates: start: 20040610, end: 20040725
  7. LORAZEPAM [Concomitant]
  8. REMERON [Concomitant]

REACTIONS (13)
  - AGITATION [None]
  - ASTHENIA [None]
  - COMPLETED SUICIDE [None]
  - DISTURBANCE IN ATTENTION [None]
  - FATIGUE [None]
  - FLAT AFFECT [None]
  - GUN SHOT WOUND [None]
  - INDIFFERENCE [None]
  - INTENTIONAL SELF-INJURY [None]
  - IRRITABILITY [None]
  - PAIN [None]
  - PSYCHOMOTOR HYPERACTIVITY [None]
  - WEIGHT DECREASED [None]
